FAERS Safety Report 18562522 (Version 3)
Quarter: 2020Q4

REPORT INFORMATION
  Report Type: Spontaneous
  Country: FR (occurrence: FR)
  Receive Date: 20201201
  Receipt Date: 20201222
  Transmission Date: 20210114
  Serious: Yes (Hospitalization)
  Sender: FDA-Public Use
  Company Number: FR-SA-2020SA340290

PATIENT

DRUGS (4)
  1. ALPROLIX [Suspect]
     Active Substance: EFTRENONACOG ALFA
     Dosage: 83 IU/KG, Q12H WITH A RESIDUAL MAINTENANCE BETWEEN 65 AND 127%
     Dates: start: 201807
  2. ALPROLIX [Suspect]
     Active Substance: EFTRENONACOG ALFA
     Dosage: 83 IU/KG, QW
     Dates: start: 20200820
  3. ALPROLIX [Suspect]
     Active Substance: EFTRENONACOG ALFA
     Dosage: 83 IU/KG, QD WITH RESIDUALS BETWEEN 67 AND 88%
     Dates: start: 201807
  4. ALPROLIX [Suspect]
     Active Substance: EFTRENONACOG ALFA
     Indication: FACTOR IX DEFICIENCY
     Dosage: 83 IU/KG (INJECTION)
     Dates: start: 20180717

REACTIONS (1)
  - Sitting disability [Unknown]
